FAERS Safety Report 7217531-1 (Version None)
Quarter: 2011Q1

REPORT INFORMATION
  Report Type: 
  Country: None (occurrence: None)
  Receive Date: 20110110
  Receipt Date: 20110103
  Transmission Date: 20110831
  Serious: Yes (Hospitalization)
  Sender: FDA-Public Use
  Company Number: FR-PFIZER INC-2011000110

PATIENT
  Age: 21 Year
  Sex: Male

DRUGS (5)
  1. LEVOTHYROX [Suspect]
     Dosage: 175 UG, 1X/DAY
     Route: 048
     Dates: start: 20101116
  2. METYRAPONE [Suspect]
     Dosage: 250 MG, 9X/DAY
     Dates: start: 20101119
  3. ALDACTONE [Suspect]
     Dosage: 75 MG, 1X/DAY
     Route: 048
     Dates: start: 20101116
  4. LYSODREN [Suspect]
     Dosage: 1 G, 2X/DAY
     Route: 048
     Dates: start: 20101006
  5. METYRAPONE [Suspect]
     Dosage: 250 MG, 6X/DAY
     Route: 048
     Dates: start: 20101116

REACTIONS (1)
  - HEPATITIS ACUTE [None]
